FAERS Safety Report 5216723-0 (Version None)
Quarter: 2007Q1

REPORT INFORMATION
  Report Type: 
  Country: None (occurrence: None)
  Receive Date: 20061130
  Receipt Date: 20060530
  Transmission Date: 20070707
  Serious: Yes (Hospitalization, Other)
  Sender: FDA-Public Use
  Company Number: US200603000338

PATIENT
  Age: 43 Year
  Sex: Female
  Weight: 97.5 kg

DRUGS (7)
  1. ZYPREXA [Suspect]
     Dosage: SEE IMAGE
     Dates: start: 19970101, end: 20010901
  2. ZYPREXA [Suspect]
     Dosage: SEE IMAGE
     Dates: start: 20010501
  3. ZYPREXA [Suspect]
     Dosage: SEE IMAGE
     Dates: start: 20010801
  4. ZYPREXA [Suspect]
     Dosage: SEE IMAGE
     Dates: start: 20010820
  5. ZYPREXA [Suspect]
     Dosage: SEE IMAGE
     Dates: start: 20010901
  6. PROZAC [Concomitant]
  7. ZIPRASIDONE HCL [Concomitant]

REACTIONS (12)
  - BLOOD CHOLESTEROL ABNORMAL [None]
  - BLOOD TRIGLYCERIDES INCREASED [None]
  - DIABETES MELLITUS [None]
  - DIABETES MELLITUS NON-INSULIN-DEPENDENT [None]
  - DIABETIC KETOACIDOSIS [None]
  - GLYCOSURIA [None]
  - HYPERPHAGIA [None]
  - HYPERTENSION [None]
  - OBESITY [None]
  - POLYDIPSIA [None]
  - POLYURIA [None]
  - VISION BLURRED [None]
